FAERS Safety Report 17661535 (Version 3)
Quarter: 2020Q2

REPORT INFORMATION
  Report Type: Spontaneous
  Country: US (occurrence: US)
  Receive Date: 20200413
  Receipt Date: 20200507
  Transmission Date: 20200713
  Serious: No
  Sender: FDA-Public Use
  Company Number: US-VERTEX PHARMACEUTICALS-2020-008171

PATIENT
  Age: 29 Year
  Sex: Male
  Weight: 63 kg

DRUGS (7)
  1. TRIKAFTA [Suspect]
     Active Substance: ELEXACAFTOR\IVACAFTOR\TEZACAFTOR
     Indication: CYSTIC FIBROSIS
     Dosage: 2 TABLETS EVERY MORNING AND 1 TABLET IN EVENING, BID
     Route: 048
     Dates: start: 201911
  2. FLUCONAZOLE. [Concomitant]
     Active Substance: FLUCONAZOLE
     Dosage: 1 DOSAGE FORM, Q3D
     Route: 048
     Dates: start: 20200414
  3. PULMOZYME [Concomitant]
     Active Substance: DORNASE ALFA
     Dosage: 2.5 MILLILITER, QD
     Route: 055
     Dates: start: 20200304
  4. LEVEMIR [Concomitant]
     Active Substance: INSULIN DETEMIR
     Dosage: 32 UNITS, QPM
     Route: 058
     Dates: start: 20191231
  5. CLEOCIN T [Concomitant]
     Active Substance: CLINDAMYCIN PHOSPHATE
     Dosage: 1 APPLICATION, EVERY EVENING
     Route: 061
     Dates: start: 20200113
  6. CAYSTON [Concomitant]
     Active Substance: AZTREONAM
     Dosage: 1 UNIT, TID, ALTERNATE EVERY 28 DAYS
     Route: 055
     Dates: start: 20200414
  7. NOVOLOG [Concomitant]
     Active Substance: INSULIN ASPART
     Dosage: W/MEALS

REACTIONS (9)
  - Sputum abnormal [Unknown]
  - Chest discomfort [Unknown]
  - Secretion discharge [Recovering/Resolving]
  - Vision blurred [Recovering/Resolving]
  - Forced expiratory volume decreased [Recovering/Resolving]
  - Productive cough [Unknown]
  - Nausea [Unknown]
  - Blood glucose increased [Unknown]
  - Dyspnoea [Recovering/Resolving]

NARRATIVE: CASE EVENT DATE: 202002
